FAERS Safety Report 11124683 (Version 2)
Quarter: 2015Q2

REPORT INFORMATION
  Report Type: Spontaneous
  Country: US (occurrence: US)
  Receive Date: 20150520
  Receipt Date: 20150520
  Transmission Date: 20150821
  Serious: No
  Sender: FDA-Public Use
  Company Number: US-BAYER-2015-198177

PATIENT
  Age: 6 Year
  Sex: Male
  Weight: 24.94 kg

DRUGS (2)
  1. CLARITIN [Suspect]
     Active Substance: LORATADINE
     Indication: PRURITUS
     Dosage: 2 DF, ONCE
     Route: 048
  2. COPPERTONE WATER BABIES SPF 55 [Suspect]
     Active Substance: AVOBENZONE\HOMOSALATE\OCTISALATE\OCTOCRYLENE\OXYBENZONE
     Indication: PHOTOSENSITIVITY REACTION
     Dosage: 1 UNIT, ONCE
     Route: 061
     Dates: end: 20150505

REACTIONS (4)
  - Extra dose administered [Unknown]
  - Product use issue [Unknown]
  - Rash erythematous [Not Recovered/Not Resolved]
  - Rash [Not Recovered/Not Resolved]

NARRATIVE: CASE EVENT DATE: 20150505
